FAERS Safety Report 10229963 (Version 1)
Quarter: 2014Q2

REPORT INFORMATION
  Report Type: Spontaneous
  Country: US (occurrence: None)
  Receive Date: 20140610
  Receipt Date: 20140610
  Transmission Date: 20141212
  Serious: Yes (Other)
  Sender: FDA-Public Use
  Company Number: None

PATIENT
  Age: 39 Year
  Sex: Male
  Weight: 79.38 kg

DRUGS (1)
  1. ADDERALL XR [Suspect]
     Indication: ATTENTION DEFICIT/HYPERACTIVITY DISORDER
     Dosage: 1 PILL, ONCE DAILY, TAKEN BY MOUTH
     Route: 048
     Dates: start: 20140602, end: 20140605

REACTIONS (11)
  - Headache [None]
  - Flat affect [None]
  - Depressed mood [None]
  - Irritability [None]
  - Fatigue [None]
  - Muscle spasms [None]
  - Hyperhidrosis [None]
  - Abnormal behaviour [None]
  - Social avoidant behaviour [None]
  - Product substitution issue [None]
  - Product quality issue [None]
